FAERS Safety Report 18605129 (Version 1)
Quarter: 2020Q4

REPORT INFORMATION
  Report Type: Spontaneous
  Country: US (occurrence: US)
  Receive Date: 20201211
  Receipt Date: 20201211
  Transmission Date: 20210114
  Serious: No
  Sender: FDA-Public Use
  Company Number: US-TEVA-2020-US-1858351

PATIENT
  Age: 83 Year
  Sex: Female

DRUGS (2)
  1. CARVEDILOL. [Suspect]
     Active Substance: CARVEDILOL
     Dosage: 12.5 MILLIGRAM DAILY;
     Route: 048
     Dates: start: 2018
  2. CARVEDILOL ZYDUS [Suspect]
     Active Substance: CARVEDILOL

REACTIONS (1)
  - Diarrhoea [Unknown]
